FAERS Safety Report 8022301-0 (Version None)
Quarter: 2012Q1

REPORT INFORMATION
  Report Type: 
  Country: None (occurrence: None)
  Receive Date: 20120104
  Receipt Date: 20111230
  Transmission Date: 20120608
  Serious: Yes (Other)
  Sender: FDA-Public Use
  Company Number: PHHY2011AT113804

PATIENT
  Sex: Female

DRUGS (1)
  1. ZOLEDRONOC ACID [Suspect]
     Route: 042

REACTIONS (7)
  - MALAISE [None]
  - INFLUENZA LIKE ILLNESS [None]
  - ARTHRALGIA [None]
  - TREMOR [None]
  - PYREXIA [None]
  - PARALYSIS [None]
  - CHILLS [None]
